FAERS Safety Report 14507114 (Version 1)
Quarter: 2018Q1

REPORT INFORMATION
  Report Type: Spontaneous
  Country: GB (occurrence: GB)
  Receive Date: 20180208
  Receipt Date: 20180208
  Transmission Date: 20180509
  Serious: Yes (Other)
  Sender: FDA-Public Use
  Company Number: GB-PFIZER INC-2018037768

PATIENT
  Age: 14 Year
  Sex: Female

DRUGS (1)
  1. XANAX [Suspect]
     Active Substance: ALPRAZOLAM
     Dosage: UNK

REACTIONS (6)
  - Confusional state [Unknown]
  - Withdrawal syndrome [Unknown]
  - Drug abuse [Unknown]
  - Aggression [Unknown]
  - Feeling abnormal [Unknown]
  - Abnormal behaviour [Unknown]
